FAERS Safety Report 9648644 (Version 1)
Quarter: 2013Q4

REPORT INFORMATION
  Report Type: Spontaneous
  Country: GB (occurrence: GB)
  Receive Date: 20131028
  Receipt Date: 20131028
  Transmission Date: 20140711
  Serious: Yes (Other)
  Sender: FDA-Public Use
  Company Number: GB-009507513-1310GBR009734

PATIENT
  Age: 78 Year
  Sex: Male
  Weight: 82.5 kg

DRUGS (17)
  1. IMIPENEM (+) CILASTATIN SODIUM [Suspect]
     Indication: BRONCHIECTASIS
     Dosage: 1 G, TID
     Route: 042
     Dates: start: 20130925, end: 20130930
  2. CARBOCYSTEINE [Concomitant]
     Dosage: UNK
  3. ACETAMINOPHEN (+) CODEINE PHOSPHATE [Concomitant]
     Dosage: UNK
  4. DIPYRIDAMOLE [Concomitant]
     Dosage: UNK
  5. FLUTICASONE [Concomitant]
     Dosage: UNK
  6. FUROSEMIDE [Concomitant]
     Dosage: UNK
  7. GENTAMICIN [Concomitant]
     Dosage: 4 MG/KG
     Dates: start: 20130925
  8. GENTAMICIN [Concomitant]
     Dosage: 4 MG/KG, 1 TOTAL
  9. IPRATROPIUM BROMIDE [Concomitant]
     Dosage: UNK
  10. ISOSORBIDE MONONITRATE [Concomitant]
     Dosage: UNK
  11. LANSOPRAZOLE [Concomitant]
     Dosage: UNK
  12. LAXIDO [Concomitant]
     Dosage: UNK
  13. LEVOTHYROXINE SODIUM [Concomitant]
     Dosage: UNK
  14. NAFRONYL OXALATE [Concomitant]
     Dosage: UNK
  15. NAPROXEN [Concomitant]
     Dosage: UNK
  16. ALBUTEROL [Concomitant]
     Dosage: UNK
  17. SOTALOL HYDROCHLORIDE [Concomitant]
     Dosage: UNK

REACTIONS (2)
  - Disorientation [Unknown]
  - Confusional state [Recovered/Resolved]
